FAERS Safety Report 17733944 (Version 2)
Quarter: 2020Q2

REPORT INFORMATION
  Report Type: Spontaneous
  Country: JP (occurrence: JP)
  Receive Date: 20200501
  Receipt Date: 20200508
  Transmission Date: 20200714
  Serious: Yes (Hospitalization, Other)
  Sender: FDA-Public Use
  Company Number: JP-MACLEODS PHARMACEUTICALS US LTD-MAC2020026326

PATIENT

DRUGS (4)
  1. LIDOCAINE. [Suspect]
     Active Substance: LIDOCAINE
     Indication: SEIZURE
     Dosage: 2 MILLIGRAM/KILOGRAM, CONTINUOUS INTRAVENOUS INFUSION OF LID STARTED (0.3 TO 2.0 MG/KG/HR)
     Route: 041
  2. VIGABATRIN. [Concomitant]
     Active Substance: VIGABATRIN
     Indication: SEIZURE
     Dosage: UNK, INCREASED VGB
     Route: 065
  3. LIDOCAINE. [Suspect]
     Active Substance: LIDOCAINE
     Dosage: 0.3 MILLIGRAM/KILOGRAM,CONTINUOUS INTRAVENOUS INFUSION OF LID WAS STARTED (0.3 TO 2.0 MG/KG/HR)
     Route: 041
  4. LIDOCAINE. [Suspect]
     Active Substance: LIDOCAINE
     Dosage: 3 DOSAGE FORM, QD, LIDOCAINE PATCH (18MG PER SHEET)
     Route: 062

REACTIONS (2)
  - Hyperuricaemia [Recovering/Resolving]
  - Mood altered [Unknown]
